FAERS Safety Report 21642593 (Version 1)
Quarter: 2022Q4

REPORT INFORMATION
  Report Type: Spontaneous
  Country: SE (occurrence: SE)
  Receive Date: 20221125
  Receipt Date: 20221125
  Transmission Date: 20230113
  Serious: Yes (Other)
  Sender: FDA-Public Use
  Company Number: SE-CHEPLA-2022010728

PATIENT
  Sex: Male

DRUGS (1)
  1. CLONAZEPAM [Suspect]
     Active Substance: CLONAZEPAM

REACTIONS (4)
  - Product availability issue [Unknown]
  - Status epilepticus [Unknown]
  - Therapy interrupted [Unknown]
  - Off label use [Unknown]
